FAERS Safety Report 19918501 (Version 1)
Quarter: 2021Q4

REPORT INFORMATION
  Report Type: Spontaneous
  Country: DE (occurrence: RS)
  Receive Date: 20211004
  Receipt Date: 20211004
  Transmission Date: 20220303
  Serious: Yes (Other)
  Sender: FDA-Public Use
  Company Number: RS-MERCK HEALTHCARE KGAA-9268839

PATIENT
  Age: 52 Year
  Sex: Male

DRUGS (4)
  1. ERBITUX [Suspect]
     Active Substance: CETUXIMAB
     Indication: Nasal sinus cancer
     Dosage: UNK UNK, UNKNOWN
     Route: 065
     Dates: start: 20200702, end: 202012
  2. FLUOROURACIL [Concomitant]
     Active Substance: FLUOROURACIL
     Indication: Nasal sinus cancer
     Dosage: UNK
     Dates: start: 20191031
  3. FLUOROURACIL [Concomitant]
     Active Substance: FLUOROURACIL
     Dosage: UNK
     Dates: start: 20200702, end: 202012
  4. CARBOPLATIN [Concomitant]
     Active Substance: CARBOPLATIN
     Indication: Nasal sinus cancer
     Dosage: UNK
     Dates: start: 20200702, end: 202012

REACTIONS (1)
  - Metastases to lung [Unknown]

NARRATIVE: CASE EVENT DATE: 20210723
